FAERS Safety Report 7915785-7 (Version None)
Quarter: 2011Q4

REPORT INFORMATION
  Report Type: 
  Country: None (occurrence: None)
  Receive Date: 20111115
  Receipt Date: 20111104
  Transmission Date: 20120403
  Serious: Yes (Life-Threatening, Hospitalization)
  Sender: FDA-Public Use
  Company Number: JP-PFIZER INC-0010788301PHAMED

PATIENT
  Sex: Female

DRUGS (2)
  1. GENOTROPIN [Suspect]
     Indication: GROWTH HORMONE DEFICIENCY
     Dosage: 3 IU, WEEKLY
     Route: 058
     Dates: start: 19950614, end: 19961202
  2. AZELASTINE [Concomitant]
     Dosage: UNK
     Dates: start: 19930120, end: 19961202

REACTIONS (1)
  - BRAIN NEOPLASM [None]
